FAERS Safety Report 24221613 (Version 1)
Quarter: 2024Q3

REPORT INFORMATION
  Report Type: Report from Study
  Country: US (occurrence: None)
  Receive Date: 20240819
  Receipt Date: 20240819
  Transmission Date: 20241016
  Serious: Yes (Hospitalization)
  Sender: ASTRAZENECA
  Company Number: 2023A233966

PATIENT
  Age: 942 Month
  Sex: Female

DRUGS (1)
  1. FASENRA [Suspect]
     Active Substance: BENRALIZUMAB
     Route: 058

REACTIONS (14)
  - Dizziness [Unknown]
  - Dysstasia [Unknown]
  - Speech disorder [Unknown]
  - Throat tightness [Unknown]
  - Gastrointestinal motility disorder [Unknown]
  - Secretion discharge [Unknown]
  - Dysphagia [Unknown]
  - Pharyngeal swelling [Unknown]
  - Chronic obstructive pulmonary disease [Unknown]
  - Abdominal pain upper [Unknown]
  - Diarrhoea [Unknown]
  - Constipation [Unknown]
  - Dysuria [Unknown]
  - Product use issue [Unknown]

NARRATIVE: CASE EVENT DATE: 20230901
